FAERS Safety Report 8603861 (Version 2)
Quarter: 2014Q1

REPORT INFORMATION
  Report Type: Spontaneous
  Country: US (occurrence: None)
  Receive Date: 20120323
  Receipt Date: 20130305
  Transmission Date: 20141002
  Serious: Yes (Hospitalization, Other)
  Sender: FDA-Public Use
  Company Number: 163-21880-11121610

PATIENT
  Age: 85 Year
  Sex: Male

DRUGS (4)
  1. REVLIMID [Suspect]
     Indication: PLASMA CELL MYELOMA
     Dosage: 10 MG, 1 IN 1 D, PO 4 MG, 1 IN 1 D, PO
     Route: 048
     Dates: start: 20091127
  2. CYTOXAN (CYCLOPHOSPHAMIDE) (UNKNOWN) [Suspect]
     Dosage: 4 DAYS A WEEK
     Route: 042
     Dates: start: 20111026, end: 20111115
  3. PREDNISONE (PREDNISONE) (UNKNOWN) [Concomitant]
  4. ZOMETA (ZOLENDRONIC ACID) (UNKNOWN) [Concomitant]

REACTIONS (2)
  - Anaemia [None]
  - Immunosuppression [None]
